FAERS Safety Report 18758075 (Version 2)
Quarter: 2021Q1

REPORT INFORMATION
  Report Type: Spontaneous
  Country: US (occurrence: US)
  Receive Date: 20210119
  Receipt Date: 20210330
  Transmission Date: 20210419
  Serious: Yes (Hospitalization)
  Sender: FDA-Public Use
  Company Number: US-PFIZER INC-2021028804

PATIENT
  Age: 38 Year
  Sex: Female

DRUGS (1)
  1. XELJANZ [Suspect]
     Active Substance: TOFACITINIB CITRATE
     Indication: COLITIS ULCERATIVE
     Dosage: 10 MG, 2X/DAY
     Route: 048
     Dates: start: 202010, end: 202102

REACTIONS (5)
  - Illness [Unknown]
  - Blood disorder [Unknown]
  - Abdominal infection [Unknown]
  - Depressed mood [Unknown]
  - Discouragement [Unknown]
